FAERS Safety Report 15426031 (Version 1)
Quarter: 2018Q4

REPORT INFORMATION
  Report Type: Spontaneous
  Country: AR (occurrence: AR)
  Receive Date: 20180925
  Receipt Date: 20180925
  Transmission Date: 20190204
  Serious: Yes (Death)
  Sender: FDA-Public Use
  Company Number: PHHY2018AR108046

PATIENT
  Age: 87 Year
  Sex: Female

DRUGS (2)
  1. ALCON LAGRIMA II (ALC) (DEXTRAN 70\HYPROMELLOSE) [Suspect]
     Active Substance: DEXTRAN 70\HYPROMELLOSES
     Indication: POSTOPERATIVE CARE
     Dosage: UNK UNK, PRN
     Route: 047
  2. ALCON LAGRIMA II (ALC) (DEXTRAN 70\HYPROMELLOSE) [Suspect]
     Active Substance: DEXTRAN 70\HYPROMELLOSES
     Indication: HERPES OPHTHALMIC

REACTIONS (3)
  - Cerebrovascular accident [Fatal]
  - Dyspnoea [Fatal]
  - Syncope [Fatal]

NARRATIVE: CASE EVENT DATE: 20170625
